FAERS Safety Report 24102308 (Version 3)
Quarter: 2025Q3

REPORT INFORMATION
  Report Type: Spontaneous
  Country: US (occurrence: US)
  Receive Date: 20240717
  Receipt Date: 20250715
  Transmission Date: 20251020
  Serious: No
  Sender: NOVO NORDISK
  Company Number: US-NOVOPROD-1233664

PATIENT
  Sex: Female

DRUGS (4)
  1. OZEMPIC [Suspect]
     Active Substance: SEMAGLUTIDE
     Indication: Product used for unknown indication
     Route: 058
  2. OZEMPIC [Suspect]
     Active Substance: SEMAGLUTIDE
     Route: 058
  3. OZEMPIC [Suspect]
     Active Substance: SEMAGLUTIDE
     Indication: Product used for unknown indication
  4. OZEMPIC [Suspect]
     Active Substance: SEMAGLUTIDE

REACTIONS (7)
  - Stress [Unknown]
  - Weight fluctuation [Unknown]
  - Nausea [Unknown]
  - Eructation [Unknown]
  - Abdominal pain upper [Unknown]
  - Weight decreased [Unknown]
  - Drug ineffective [Unknown]
